FAERS Safety Report 7092809-3 (Version None)
Quarter: 2010Q4

REPORT INFORMATION
  Report Type: 
  Country: None (occurrence: None)
  Receive Date: 20101110
  Receipt Date: 20101101
  Transmission Date: 20110411
  Serious: No
  Sender: FDA-Public Use
  Company Number: US-PFIZER INC-2010139362

PATIENT
  Sex: Female

DRUGS (7)
  1. NEURONTIN [Suspect]
     Dosage: 300 MG, 1X/DAY
     Route: 048
     Dates: start: 20101001
  2. ZANAFLEX [Concomitant]
     Indication: FIBROMYALGIA
     Dosage: 6 MG, 1X/DAY
     Route: 048
  3. ZANAFLEX [Concomitant]
     Indication: MUSCLE SPASTICITY
  4. ATIVAN [Concomitant]
     Indication: NIGHTMARE
     Dosage: 0.5 MG, 1X/DAY
     Route: 048
  5. VITAMIN B6 [Concomitant]
     Indication: VITAMIN SUPPLEMENTATION
     Dosage: UNK
     Dates: start: 20101001
  6. VITAMIN D [Concomitant]
     Indication: VITAMIN SUPPLEMENTATION
     Dosage: 50000 IU, 2X/WEEK
     Route: 048
     Dates: start: 20101001
  7. CALCIUM [Concomitant]
     Indication: MINERAL SUPPLEMENTATION
     Dosage: 600 MG, 2X/DAY
     Route: 048
     Dates: start: 20101001

REACTIONS (2)
  - BOREDOM [None]
  - THINKING ABNORMAL [None]
